FAERS Safety Report 7537043-5 (Version None)
Quarter: 2011Q2

REPORT INFORMATION
  Report Type: 
  Country: None (occurrence: None)
  Receive Date: 20110609
  Receipt Date: 20110526
  Transmission Date: 20111010
  Serious: Yes (Other)
  Sender: FDA-Public Use
  Company Number: PHHY2011FR46997

PATIENT
  Sex: Female

DRUGS (6)
  1. TANAKAN [Concomitant]
  2. BISOPROLOL FUMARATE [Concomitant]
  3. DAFLON [Concomitant]
  4. ALPHAGAN [Concomitant]
     Indication: GLAUCOMA
  5. FEMARA [Suspect]
     Indication: BREAST CANCER
     Dosage: 2.5 MG, QD
     Route: 048
     Dates: start: 20071101
  6. LEVOTHYROXINE SODIUM [Concomitant]
     Dosage: ALTERNATELY 100 ?G/DAY AND 12.5 ?G/DAY

REACTIONS (8)
  - URINARY INCONTINENCE [None]
  - DYSURIA [None]
  - INCREASED APPETITE [None]
  - APPETITE DISORDER [None]
  - MICTURITION DISORDER [None]
  - GENERALISED OEDEMA [None]
  - WEIGHT INCREASED [None]
  - DECREASED APPETITE [None]
